FAERS Safety Report 18910127 (Version 2)
Quarter: 2021Q2

REPORT INFORMATION
  Report Type: Spontaneous
  Country: US (occurrence: US)
  Receive Date: 20210218
  Receipt Date: 20210520
  Transmission Date: 20210717
  Serious: Yes (Other)
  Sender: FDA-Public Use
  Company Number: US-GLAXOSMITHKLINE-US2021GSK045547

PATIENT
  Sex: Male

DRUGS (4)
  1. ZANTAC [Suspect]
     Active Substance: RANITIDINE HYDROCHLORIDE
     Indication: GASTRIC ULCER
     Dosage: 75 MG,1X DAY/ 3X PER WEEK; AND OCCASIONALLY FOR TIMES WHEN HE DIDNT NEED IT
     Route: 065
     Dates: start: 198806, end: 201907
  2. ZANTAC [Suspect]
     Active Substance: RANITIDINE HYDROCHLORIDE
     Indication: DYSPEPSIA
     Dosage: 25 MG,1X DAY/ 3X PER WEEK; AND OCCASIONALLY FOR TIMES WHEN HE DIDNT NEED IT
     Route: 065
     Dates: start: 198806, end: 201907
  3. ZANTAC [Suspect]
     Active Substance: RANITIDINE HYDROCHLORIDE
     Indication: GASTRIC ULCER
     Dosage: 75 MG,1X DAY/ 3X PER WEEK; AND OCCASIONALLY FOR TIMES WHEN HE DIDNT NEED IT
     Route: 065
     Dates: start: 198806, end: 201907
  4. ZANTAC [Suspect]
     Active Substance: RANITIDINE HYDROCHLORIDE
     Indication: DYSPEPSIA
     Dosage: 25 MG,1X DAY/ 3X PER WEEK; AND OCCASIONALLY FOR TIMES WHEN HE DIDNT NEED IT
     Route: 065
     Dates: start: 198806, end: 201907

REACTIONS (1)
  - Renal cancer [Unknown]
